FAERS Safety Report 8790502 (Version 1)
Quarter: 2012Q4

REPORT INFORMATION
  Report Type: Spontaneous
  Country: US (occurrence: None)
  Receive Date: 20120911
  Receipt Date: 20120911
  Transmission Date: 20130627
  Serious: Yes (Other)
  Sender: FDA-Public Use
  Company Number: None

PATIENT
  Age: 63 Year
  Sex: Female
  Weight: 68.95 kg

DRUGS (2)
  1. FLUOXETINE [Suspect]
     Indication: DEPRESSION
     Dosage: 1 cap 2x daily po
     Route: 048
     Dates: start: 20120813, end: 20120907
  2. FLUOXETINE [Suspect]
     Indication: ANXIETY
     Dosage: 1 cap 2x daily po
     Route: 048
     Dates: start: 20120813, end: 20120907

REACTIONS (2)
  - Product substitution issue [None]
  - Anxiety [None]
